FAERS Safety Report 4862273-0 (Version None)
Quarter: 2005Q4

REPORT INFORMATION
  Report Type: 
  Country: None (occurrence: None)
  Receive Date: 20051221
  Receipt Date: 20051208
  Transmission Date: 20060501
  Serious: Yes (Hospitalization)
  Sender: FDA-Public Use
  Company Number: PHEH2005US13319

PATIENT
  Sex: Female

DRUGS (1)
  1. ENABLEX [Suspect]
     Dosage: 7.5 MG, QD

REACTIONS (6)
  - BLISTER [None]
  - DRY MOUTH [None]
  - HYPERSENSITIVITY [None]
  - MOUTH ULCERATION [None]
  - PARAESTHESIA ORAL [None]
  - SWELLING FACE [None]
